FAERS Safety Report 8183259-7 (Version None)
Quarter: 2012Q1

REPORT INFORMATION
  Report Type: 
  Country: None (occurrence: None)
  Receive Date: 20120305
  Receipt Date: 20120223
  Transmission Date: 20120608
  Serious: Yes (Other)
  Sender: FDA-Public Use
  Company Number: US-BRISTOL-MYERS SQUIBB COMPANY-16414963

PATIENT
  Age: 66 Year
  Sex: Female
  Weight: 73 kg

DRUGS (8)
  1. NORVASC [Suspect]
     Indication: BLOOD PRESSURE
     Dosage: TABS UNK-31JAN2012 01FEB-05FEB2012
     Route: 048
     Dates: start: 20120201, end: 20120205
  2. COREG [Suspect]
     Indication: CARDIAC DISORDER
     Dosage: COREG-CR
  3. ASPIRIN [Concomitant]
     Dosage: ENTERIC COATED TABLET
     Route: 048
  4. PRAVASTATIN SODIUM [Suspect]
     Indication: BLOOD CHOLESTEROL ABNORMAL
     Dates: start: 20110101, end: 20120104
  5. LIPITOR [Suspect]
     Indication: BLOOD CHOLESTEROL ABNORMAL
     Dosage: TABS 05JAN-20JAN12,80MG/D
     Route: 048
     Dates: start: 20120105, end: 20120128
  6. LISINOPRIL [Concomitant]
     Indication: BLOOD PRESSURE
     Dates: start: 19960801
  7. VITAMIN TAB [Concomitant]
  8. SIMVASTATIN [Suspect]
     Indication: BLOOD CHOLESTEROL ABNORMAL
     Dates: start: 19960401, end: 20120128

REACTIONS (4)
  - WEIGHT DECREASED [None]
  - DRUG INEFFECTIVE [None]
  - CARDIAC DISORDER [None]
  - BLOOD CHOLESTEROL INCREASED [None]
